FAERS Safety Report 24738454 (Version 1)
Quarter: 2024Q4

REPORT INFORMATION
  Report Type: Report from Study
  Country: US (occurrence: US)
  Receive Date: 20241216
  Receipt Date: 20241216
  Transmission Date: 20250114
  Serious: Yes (Life-Threatening)
  Sender: JOHNSON AND JOHNSON
  Company Number: US-JNJFOC-20230948757

PATIENT
  Age: 30 Year
  Sex: Female

DRUGS (11)
  1. SPRAVATO [Suspect]
     Active Substance: ESKETAMINE
     Indication: Depression
     Dosage: ^56 MG, 4 TOTAL DOSES^
     Route: 045
     Dates: start: 20221101, end: 20221110
  2. SPRAVATO [Suspect]
     Active Substance: ESKETAMINE
     Dosage: ^84 MG, 32 TOTAL DOSES^
     Route: 045
     Dates: start: 20221117, end: 20230907
  3. SPRAVATO [Suspect]
     Active Substance: ESKETAMINE
     Dosage: ^84 MG, 1 TOTAL DOSE^
     Route: 045
     Dates: start: 20230918, end: 20230918
  4. SPRAVATO [Suspect]
     Active Substance: ESKETAMINE
     Dosage: ^84 MG 2 TOTAL DOSES^
     Route: 045
     Dates: start: 20231002, end: 20231016
  5. ADDERALL [Concomitant]
     Active Substance: AMPHETAMINE ASPARTATE\AMPHETAMINE SULFATE\DEXTROAMPHETAMINE SACCHARATE\DEXTROAMPHETAMINE SULFATE
     Indication: Attention deficit hyperactivity disorder
     Dosage: XR (EXTENDED RELEASE)
     Route: 048
     Dates: start: 2022
  6. LUNESTA [Concomitant]
     Active Substance: ESZOPICLONE
     Indication: Insomnia
     Route: 048
     Dates: start: 2022
  7. LITHIUM [Concomitant]
     Active Substance: LITHIUM
     Indication: Affective disorder
     Route: 048
     Dates: start: 2022
  8. PRAZOSIN [Concomitant]
     Active Substance: PRAZOSIN
     Indication: Post-traumatic stress disorder
     Route: 048
     Dates: start: 2022
  9. TOPAMAX [Concomitant]
     Active Substance: TOPIRAMATE
     Indication: Affective disorder
     Route: 048
     Dates: start: 2022
  10. PROPRANOLOL [Concomitant]
     Active Substance: PROPRANOLOL HYDROCHLORIDE
     Indication: Anxiety
     Route: 048
     Dates: start: 2022
  11. VRAYLAR [Concomitant]
     Active Substance: CARIPRAZINE
     Indication: Depression
     Route: 048
     Dates: start: 2022

REACTIONS (2)
  - Dissociative disorder [Recovered/Resolved]
  - Heart rate decreased [Recovered/Resolved]

NARRATIVE: CASE EVENT DATE: 20230918
